FAERS Safety Report 18807594 (Version 1)
Quarter: 2021Q1

REPORT INFORMATION
  Report Type: Spontaneous
  Country: US (occurrence: US)
  Receive Date: 20210128
  Receipt Date: 20210128
  Transmission Date: 20210419
  Serious: No
  Sender: FDA-Public Use
  Company Number: None

PATIENT
  Age: 72 Year
  Sex: Male
  Weight: 56 kg

DRUGS (1)
  1. MORPHINE (MORPHINE SO4 2MG/ML INJ) [Suspect]
     Active Substance: MORPHINE SULFATE
     Indication: PAIN
     Route: 042
     Dates: start: 20201001, end: 20201002

REACTIONS (2)
  - Erythema multiforme [None]
  - Rash [None]

NARRATIVE: CASE EVENT DATE: 20201001
